FAERS Safety Report 5129262-2 (Version None)
Quarter: 2006Q4

REPORT INFORMATION
  Report Type: 
  Country: None (occurrence: None)
  Receive Date: 20061011
  Receipt Date: 20061006
  Transmission Date: 20070319
  Serious: Yes (Other)
  Sender: FDA-Public Use
  Company Number: TCI2006A03117

PATIENT
  Age: 35 Year
  Sex: Female

DRUGS (1)
  1. LEUPROLIDE ACETATE [Suspect]
     Indication: ENDOMETRIOSIS
     Dosage: 1.88 MG (1.88MG, 1 IN 28 D) SUBCUTANEOUS
     Route: 058
     Dates: start: 20050625, end: 20050719

REACTIONS (5)
  - ASCITES [None]
  - BLOOD PRESSURE DECREASED [None]
  - OVARIAN CYST RUPTURED [None]
  - THERAPY NON-RESPONDER [None]
  - VOMITING [None]
